FAERS Safety Report 24898775 (Version 2)
Quarter: 2025Q1

REPORT INFORMATION
  Report Type: Spontaneous
  Country: US (occurrence: US)
  Receive Date: 20250129
  Receipt Date: 20250212
  Transmission Date: 20250409
  Serious: Yes (Death, Hospitalization, Other)
  Sender: BRISTOL-MYERS SQUIBB COMPANY
  Company Number: US-BRISTOL-MYERS SQUIBB COMPANY-2025-013540

PATIENT
  Age: 89 Year
  Sex: Male
  Weight: 68.04 kg

DRUGS (39)
  1. ELIQUIS [Suspect]
     Active Substance: APIXABAN
     Indication: Atrial fibrillation
     Route: 048
     Dates: start: 20240613, end: 20241212
  2. SPIRONOLACTONE [Concomitant]
     Active Substance: SPIRONOLACTONE
     Indication: Cardiac failure congestive
     Dosage: TUESDAY, THURSDAY, SATURDAY
  3. SPIRONOLACTONE [Concomitant]
     Active Substance: SPIRONOLACTONE
     Indication: Oedema
  4. TAMSULOSIN [Concomitant]
     Active Substance: TAMSULOSIN
     Indication: Benign prostatic hyperplasia
  5. XARELTO [Concomitant]
     Active Substance: RIVAROXABAN
     Indication: Product used for unknown indication
  6. FEBUXOSTAT [Concomitant]
     Active Substance: FEBUXOSTAT
     Indication: Rheumatoid arthritis
  7. FEBUXOSTAT [Concomitant]
     Active Substance: FEBUXOSTAT
     Indication: Gout
  8. PREDNISONE [Concomitant]
     Active Substance: PREDNISONE
     Indication: Giant cell arteritis
     Dosage: SLOW TAPER
  9. PREDNISONE [Concomitant]
     Active Substance: PREDNISONE
     Indication: Rheumatoid arthritis
  10. PREDNISONE [Concomitant]
     Active Substance: PREDNISONE
     Indication: Polymyalgia rheumatica
  11. CINNAMON\HERBALS [Concomitant]
     Active Substance: CINNAMON\HERBALS
     Indication: Supplementation therapy
  12. ASCORBIC ACID\CRANBERRY [Concomitant]
     Active Substance: ASCORBIC ACID\CRANBERRY
     Indication: Supplementation therapy
     Route: 048
  13. DICLOFENAC [Concomitant]
     Active Substance: DICLOFENAC
     Indication: Pain
     Dosage: 29
     Route: 061
  14. LUTEINE [XANTOFYL;ZEAXANTHIN] [Concomitant]
     Indication: Eye disorder
  15. AZELASTINE [Concomitant]
     Active Substance: AZELASTINE
     Indication: Dry eye
     Dosage: ONE DROP BOTH EYES DAILY, 18 ML/DROP
     Route: 047
  16. MUCINEX [Concomitant]
     Active Substance: GUAIFENESIN
     Indication: Nasal congestion
  17. ALBUTEROL [Concomitant]
     Active Substance: ALBUTEROL
     Indication: Chronic obstructive pulmonary disease
     Dosage: 2.5MG/3ML NEBULIZER
  18. ALBUTEROL [Concomitant]
     Active Substance: ALBUTEROL
     Indication: Dyspnoea
     Dosage: 2 PUFFS EVERY 4 HRS/PRN
  19. VITAMIN D3 [Concomitant]
     Active Substance: CHOLECALCIFEROL
     Indication: Supplementation therapy
  20. METOLAZONE [Concomitant]
     Active Substance: METOLAZONE
     Indication: Cardiac failure congestive
  21. METOLAZONE [Concomitant]
     Active Substance: METOLAZONE
     Indication: Oedema
  22. POTASSIUM [Concomitant]
     Active Substance: POTASSIUM
     Indication: Hypokalaemia
  23. BREON [Concomitant]
     Indication: Dyspnoea
     Dosage: 100-25 MG, 1 PUFF DAILY
  24. BREON [Concomitant]
     Indication: Chronic obstructive pulmonary disease
  25. VITAMIN B1 [Concomitant]
     Active Substance: THIAMINE HYDROCHLORIDE
     Indication: Supplementation therapy
  26. ACETAMINOPHEN [Concomitant]
     Active Substance: ACETAMINOPHEN
     Indication: Pain
  27. CYANOCOBALAMIN [Concomitant]
     Active Substance: CYANOCOBALAMIN
     Indication: Supplementation therapy
  28. CYANOCOBALAMIN [Concomitant]
     Active Substance: CYANOCOBALAMIN
  29. FOLIC ACID [Concomitant]
     Active Substance: FOLIC ACID
     Indication: Folate deficiency
  30. FOLIC ACID [Concomitant]
     Active Substance: FOLIC ACID
     Indication: Anaemia
  31. MIDODRINE [Concomitant]
     Active Substance: MIDODRINE
     Indication: Hypotension
  32. FLOMAX [Concomitant]
     Active Substance: TAMSULOSIN HYDROCHLORIDE
     Indication: Benign prostatic hyperplasia
  33. TORSEMIDE [Concomitant]
     Active Substance: TORSEMIDE
     Indication: Oedema
     Dosage: ADJUSTING DOSE TO 120 MG BID
  34. TORSEMIDE [Concomitant]
     Active Substance: TORSEMIDE
     Indication: Cardiac failure congestive
  35. TYLENOL [Concomitant]
     Active Substance: ACETAMINOPHEN
     Indication: Pain
     Dosage: PRN
  36. ULORIC [Concomitant]
     Active Substance: FEBUXOSTAT
     Indication: Pain
  37. ULORIC [Concomitant]
     Active Substance: FEBUXOSTAT
     Indication: Rheumatoid arthritis
  38. ULORIC [Concomitant]
     Active Substance: FEBUXOSTAT
     Indication: Polymyalgia rheumatica
  39. ULORIC [Concomitant]
     Active Substance: FEBUXOSTAT
     Indication: Giant cell arteritis

REACTIONS (4)
  - Left ventricular failure [Fatal]
  - Cardiac amyloidosis [Fatal]
  - Aortic valve disease [Fatal]
  - Condition aggravated [Fatal]

NARRATIVE: CASE EVENT DATE: 20240101
